FAERS Safety Report 9436222 (Version 1)
Quarter: 2013Q3

REPORT INFORMATION
  Report Type: Spontaneous
  Country: US (occurrence: US)
  Receive Date: 20130801
  Receipt Date: 20130801
  Transmission Date: 20140515
  Serious: No
  Sender: FDA-Public Use
  Company Number: US-009507513-1307USA009805

PATIENT
  Age: 65 Year
  Sex: Male

DRUGS (2)
  1. ISENTRESS [Suspect]
     Indication: HIV INFECTION
     Dosage: UNK
     Route: 048
     Dates: end: 20130708
  2. ATRIPLA [Concomitant]
     Route: 048

REACTIONS (2)
  - Viral load increased [Unknown]
  - Drug resistance [Unknown]
